FAERS Safety Report 4554577-6 (Version None)
Quarter: 2005Q1

REPORT INFORMATION
  Report Type: 
  Country: None (occurrence: None)
  Receive Date: 20050114
  Receipt Date: 20030701
  Transmission Date: 20050727
  Serious: Yes (Hospitalization)
  Sender: FDA-Public Use
  Company Number: GXKR2003US00536

PATIENT
  Age: 24 Year
  Sex: Male

DRUGS (2)
  1. FAMOTIDINE [Suspect]
     Indication: MEDICATION ERROR
     Dosage: 2000 MG, ORAL
     Route: 048
  2. DOLOBID [Suspect]
     Indication: MEDICATION ERROR
     Dosage: 3500 MG, ORAL
     Route: 048

REACTIONS (1)
  - INTENTIONAL MISUSE [None]
